FAERS Safety Report 8002151-1 (Version None)
Quarter: 2011Q4

REPORT INFORMATION
  Report Type: 
  Country: None (occurrence: None)
  Receive Date: 20111222
  Receipt Date: 20111219
  Transmission Date: 20120403
  Serious: Yes (Life-Threatening, Hospitalization)
  Sender: FDA-Public Use
  Company Number: US-JNJFOC-20111205749

PATIENT
  Sex: Male
  Weight: 72.12 kg

DRUGS (6)
  1. EFFEXOR [Concomitant]
     Indication: DEPRESSION
  2. HALOPERIDOL [Suspect]
     Indication: SCHIZOPHRENIA
     Dates: start: 20110930, end: 20111007
  3. ALCOHOL [Suspect]
     Indication: PRODUCT USED FOR UNKNOWN INDICATION
  4. VICODIN [Concomitant]
     Indication: PAIN
  5. LANTUS [Concomitant]
     Indication: DIABETES MELLITUS
  6. ELAVIL [Concomitant]
     Indication: DEPRESSION

REACTIONS (3)
  - SUICIDE ATTEMPT [None]
  - SCHIZOPHRENIA [None]
  - DEPRESSION [None]
